FAERS Safety Report 5429619-6 (Version None)
Quarter: 2007Q3

REPORT INFORMATION
  Report Type: 
  Country: None (occurrence: None)
  Receive Date: 20070824
  Receipt Date: 20070810
  Transmission Date: 20080115
  Serious: Yes (Hospitalization)
  Sender: FDA-Public Use
  Company Number: 060001M07CHE

PATIENT
  Age: 31 Year
  Sex: Female
  Weight: 55 kg

DRUGS (1)
  1. SEROPHENE [Suspect]
     Indication: OVULATION INDUCTION
     Dosage: 50 MG, 1 IN 1 DAYS, ORAL
     Route: 048
     Dates: start: 20070317, end: 20070321

REACTIONS (2)
  - OVARIAN CYST [None]
  - OVARIAN TORSION [None]
